FAERS Safety Report 21173774 (Version 1)
Quarter: 2022Q3

REPORT INFORMATION
  Report Type: Spontaneous
  Country: US (occurrence: US)
  Receive Date: 20220804
  Receipt Date: 20220804
  Transmission Date: 20221027
  Serious: No
  Sender: FDA-Public Use
  Company Number: US-PERRIGO-22US000023

PATIENT
  Age: 47 Year
  Sex: Female
  Weight: 88.889 kg

DRUGS (4)
  1. LORATADINE [Suspect]
     Active Substance: LORATADINE
     Indication: Rhinorrhoea
     Dosage: 10 MG, QD
     Route: 048
     Dates: start: 2012, end: 20211228
  2. LORATADINE [Suspect]
     Active Substance: LORATADINE
     Indication: Sneezing
     Dosage: 10 MG, SINGLE
     Route: 048
     Dates: start: 20220103, end: 20220103
  3. FLUNISOLIDE ACETATE [Concomitant]
     Active Substance: FLUNISOLIDE ACETATE
     Indication: Rhinorrhoea
     Dosage: UNK
     Route: 045
     Dates: start: 2012
  4. FLUNISOLIDE ACETATE [Concomitant]
     Active Substance: FLUNISOLIDE ACETATE
     Indication: Sneezing

REACTIONS (1)
  - Diarrhoea [Not Recovered/Not Resolved]

NARRATIVE: CASE EVENT DATE: 20211204
